FAERS Safety Report 11287883 (Version 1)
Quarter: 2015Q3

REPORT INFORMATION
  Report Type: Spontaneous
  Country: US (occurrence: US)
  Receive Date: 20150721
  Receipt Date: 20150721
  Transmission Date: 20151125
  Serious: No
  Sender: FDA-Public Use
  Company Number: US-UNITED THERAPEUTICS-UNT-2015-001443

PATIENT
  Sex: Female
  Weight: 63.49 kg

DRUGS (5)
  1. REMODULIN [Suspect]
     Active Substance: TREPROSTINIL
     Dosage: UNK
  2. COUMADIN [Concomitant]
     Active Substance: WARFARIN SODIUM
     Indication: PRODUCT USED FOR UNKNOWN INDICATION
  3. REMODULIN [Suspect]
     Active Substance: TREPROSTINIL
     Indication: PULMONARY HYPERTENSION
     Dosage: 0.074 ?G/KG/MIN, CONTINUING
     Route: 058
     Dates: start: 20101002
  4. REMODULIN [Suspect]
     Active Substance: TREPROSTINIL
     Dosage: 0.074 ?G/KG/MIN, CONTINUING
     Route: 058
     Dates: start: 20101204
  5. ADEMPAS [Concomitant]
     Active Substance: RIOCIGUAT
     Indication: PRODUCT USED FOR UNKNOWN INDICATION

REACTIONS (11)
  - Infusion site pain [Not Recovered/Not Resolved]
  - Device issue [Unknown]
  - Abdominal pain upper [Unknown]
  - Infusion site scar [Unknown]
  - Infusion site induration [Not Recovered/Not Resolved]
  - Infusion site mass [Unknown]
  - Infusion site reaction [Unknown]
  - Infusion site erythema [Not Recovered/Not Resolved]
  - Drug dose omission [Unknown]
  - Infusion site oedema [Not Recovered/Not Resolved]
  - Infusion site inflammation [Unknown]
